FAERS Safety Report 10904145 (Version 6)
Quarter: 2015Q2

REPORT INFORMATION
  Report Type: Spontaneous
  Country: SE (occurrence: None)
  Receive Date: 20150306
  Receipt Date: 20150430
  Transmission Date: 20150821
  Serious: Yes (Other)
  Sender: FDA-Public Use
  Company Number: 2015-10803

PATIENT
  Age: 81 Year
  Sex: Female

DRUGS (1)
  1. EYLEA [Suspect]
     Active Substance: AFLIBERCEPT
     Indication: AGE-RELATED MACULAR DEGENERATION
     Dosage: 0.05 ML, (2 INJECTIONS - LEFT EYE), INTRAOCULAR
     Route: 031
     Dates: start: 20141007, end: 20141202

REACTIONS (12)
  - Eye burns [None]
  - Ocular discomfort [None]
  - Uveitis [None]
  - Off label use [None]
  - Age-related macular degeneration [None]
  - Thermal burn [None]
  - Dry eye [None]
  - Visual impairment [None]
  - Skin abrasion [None]
  - Condition aggravated [None]
  - Eye irritation [None]
  - Deposit eye [None]

NARRATIVE: CASE EVENT DATE: 20141008
